FAERS Safety Report 5362861-1 (Version None)
Quarter: 2007Q2

REPORT INFORMATION
  Report Type: 
  Country: None (occurrence: None)
  Receive Date: 20070615
  Receipt Date: 20070530
  Transmission Date: 20071010
  Serious: No
  Sender: FDA-Public Use
  Company Number: 1022556-2007-00154

PATIENT
  Age: 76 Year
  Sex: Female
  Weight: 90.7194 kg

DRUGS (3)
  1. UNISOM [Suspect]
     Indication: INSOMNIA
     Dosage: 1 TABLET DAILY
  2. CHOLESTERAMINE [Concomitant]
  3. ALLERGY INJECTIONS [Concomitant]

REACTIONS (1)
  - VISION BLURRED [None]
